FAERS Safety Report 8496918-3 (Version None)
Quarter: 2012Q3

REPORT INFORMATION
  Report Type: 
  Country: None (occurrence: None)
  Receive Date: 20120709
  Receipt Date: 20120626
  Transmission Date: 20120928
  Serious: Yes (Hospitalization)
  Sender: FDA-Public Use
  Company Number: CA-ELI_LILLY_AND_COMPANY-CA201206008913

PATIENT
  Age: 71 Year
  Sex: Female

DRUGS (2)
  1. FORTEO [Suspect]
     Indication: OSTEOPOROSIS
     Dosage: 20 UG, QD
     Route: 058
     Dates: start: 20110214
  2. CRESTOR [Concomitant]

REACTIONS (4)
  - PAIN IN EXTREMITY [None]
  - HYPERSENSITIVITY [None]
  - ASTHENIA [None]
  - BLOOD PRESSURE INCREASED [None]
